FAERS Safety Report 11722834 (Version 1)
Quarter: 2015Q4

REPORT INFORMATION
  Report Type: Spontaneous
  Country: US (occurrence: None)
  Receive Date: 20151110
  Receipt Date: 20151110
  Transmission Date: 20160304
  Serious: No
  Sender: FDA-Public Use
  Company Number: None

PATIENT
  Age: 63 Year
  Sex: Male
  Weight: 68.04 kg

DRUGS (1)
  1. VIAGRA [Suspect]
     Active Substance: SILDENAFIL CITRATE
     Route: 048

REACTIONS (7)
  - Abdominal distension [None]
  - Feeling hot [None]
  - Hyperhidrosis [None]
  - Presyncope [None]
  - Nausea [None]
  - Product quality issue [None]
  - Abdominal pain [None]

NARRATIVE: CASE EVENT DATE: 20151101
